FAERS Safety Report 13329011 (Version 2)
Quarter: 2017Q1

REPORT INFORMATION
  Report Type: Spontaneous
  Country: JP (occurrence: JP)
  Receive Date: 20170313
  Receipt Date: 20170314
  Transmission Date: 20170428
  Serious: Yes (Death, Other)
  Sender: FDA-Public Use
  Company Number: JP-UCBSA-2017007357

PATIENT
  Age: 78 Year
  Sex: Male

DRUGS (1)
  1. E KEPPRA [Suspect]
     Active Substance: LEVETIRACETAM
     Indication: PARTIAL SEIZURES
     Dosage: 500 MG, ONCE DAILY (QD)
     Route: 048
     Dates: start: 20160801, end: 20170226

REACTIONS (3)
  - Azotaemia [Fatal]
  - Chronic kidney disease [Fatal]
  - Anaemia [Unknown]

NARRATIVE: CASE EVENT DATE: 20161226
